FAERS Safety Report 25721982 (Version 1)
Quarter: 2025Q3

REPORT INFORMATION
  Report Type: Spontaneous
  Country: US (occurrence: None)
  Receive Date: 20250823
  Receipt Date: 20250823
  Transmission Date: 20251021
  Serious: Yes (Hospitalization)
  Sender: FDA-CTU
  Company Number: None

PATIENT
  Age: 8 Year
  Sex: Male
  Weight: 33.3 kg

DRUGS (5)
  1. CARBOPLATIN [Suspect]
     Active Substance: CARBOPLATIN
     Dates: start: 20250104, end: 20250713
  2. ETOPOSIDE [Suspect]
     Active Substance: ETOPOSIDE
  3. FILGRASTIM [Suspect]
     Active Substance: FILGRASTIM
  4. MELPHALAN [Suspect]
     Active Substance: MELPHALAN
  5. SOLIRIS [Suspect]
     Active Substance: ECULIZUMAB

REACTIONS (4)
  - Pulmonary oedema [None]
  - Rhinovirus infection [None]
  - Thrombotic microangiopathy [None]
  - Respiratory failure [None]

NARRATIVE: CASE EVENT DATE: 20250814
